FAERS Safety Report 9265491 (Version 1)
Quarter: 2013Q2

REPORT INFORMATION
  Report Type: Spontaneous
  Country: US (occurrence: US)
  Receive Date: 20130501
  Receipt Date: 20130501
  Transmission Date: 20140414
  Serious: Yes (Death)
  Sender: FDA-Public Use
  Company Number: US-TEVA-401504USA

PATIENT
  Age: 6 Decade
  Sex: Male

DRUGS (1)
  1. TRISENOX [Suspect]
     Indication: MALIGNANT MELANOMA

REACTIONS (2)
  - Renal failure [Fatal]
  - Off label use [Unknown]
